FAERS Safety Report 5763865-7 (Version None)
Quarter: 2008Q2

REPORT INFORMATION
  Report Type: 
  Country: None (occurrence: None)
  Receive Date: 20080606
  Receipt Date: 20080606
  Transmission Date: 20081010
  Serious: Yes (Life-Threatening, Hospitalization)
  Sender: FDA-Public Use
  Company Number: None

PATIENT
  Age: 84 Year
  Sex: Female
  Weight: 77.1115 kg

DRUGS (9)
  1. DIGOXIN [Suspect]
     Indication: CARDIAC FAILURE
     Dosage: ONE TABLET ONCE A DAY
     Dates: start: 20070903, end: 20070916
  2. PLAVIX [Concomitant]
  3. ECCOTRIN [Concomitant]
  4. COREG [Concomitant]
  5. LISINOPRIL [Concomitant]
  6. FUROSEMIDE [Concomitant]
  7. VALIUM [Concomitant]
  8. ELAVIL [Concomitant]
  9. QUIMIOTHERAPY [Concomitant]

REACTIONS (9)
  - ACUTE MYOCARDIAL INFARCTION [None]
  - ASTHENIA [None]
  - DIZZINESS [None]
  - FATIGUE [None]
  - GAIT DISTURBANCE [None]
  - HYPOTENSION [None]
  - MOVEMENT DISORDER [None]
  - PHARMACEUTICAL PRODUCT COMPLAINT [None]
  - WHEELCHAIR USER [None]
